FAERS Safety Report 11430076 (Version 2)
Quarter: 2015Q3

REPORT INFORMATION
  Report Type: Spontaneous
  Country: KR (occurrence: KR)
  Receive Date: 20150828
  Receipt Date: 20150911
  Transmission Date: 20151125
  Serious: Yes (Hospitalization)
  Sender: FDA-Public Use
  Company Number: KR-AMGEN-KORCT2015088112

PATIENT
  Age: 60 Year
  Sex: Male
  Weight: 71.35 kg

DRUGS (24)
  1. CYCLOPHOSPHAMIDE. [Concomitant]
     Active Substance: CYCLOPHOSPHAMIDE
     Dosage: 1365 MG, UNK
     Route: 042
     Dates: start: 20150529, end: 20150529
  2. DOXORUBICIN [Concomitant]
     Active Substance: DOXORUBICIN
     Dosage: 92 MG, UNK
     Route: 042
     Dates: start: 20150714, end: 20150714
  3. PREDNISOLONE. [Concomitant]
     Active Substance: PREDNISOLONE
     Dosage: 100 MG, UNK
     Route: 048
     Dates: start: 20150529, end: 20150529
  4. PREDNISOLONE. [Concomitant]
     Active Substance: PREDNISOLONE
     Dosage: 60 MG, UNK
     Route: 048
     Dates: start: 20150811, end: 20150811
  5. DOXORUBICIN [Concomitant]
     Active Substance: DOXORUBICIN
     Dosage: 91 MG, UNK
     Route: 042
     Dates: start: 20150529, end: 20150529
  6. PREDNISOLONE. [Concomitant]
     Active Substance: PREDNISOLONE
     Dosage: 60 MG, UNK
     Route: 048
     Dates: start: 20150622, end: 20150622
  7. PREDNISOLONE. [Concomitant]
     Active Substance: PREDNISOLONE
     Dosage: 60 MG, UNK
     Route: 048
     Dates: start: 20150714, end: 20150714
  8. CYCLOPHOSPHAMIDE. [Concomitant]
     Active Substance: CYCLOPHOSPHAMIDE
     Dosage: 1380 MG, UNK
     Route: 042
     Dates: start: 20150714, end: 20150714
  9. DOXORUBICIN [Concomitant]
     Active Substance: DOXORUBICIN
     Dosage: 91 MG, UNK
     Route: 042
     Dates: start: 20150811, end: 20150811
  10. G-LASTA [Suspect]
     Active Substance: PEGFILGRASTIM
     Dosage: 6 MG, 1X/3WEEKS
     Route: 058
     Dates: start: 20150623, end: 20150623
  11. G-LASTA [Suspect]
     Active Substance: PEGFILGRASTIM
     Dosage: 6 MG, 1X/3WEEKS
     Route: 058
     Dates: start: 20150812, end: 20150812
  12. DOXORUBICIN [Concomitant]
     Active Substance: DOXORUBICIN
     Dosage: 91.5 MG, UNK
     Route: 042
     Dates: start: 20150622, end: 20150622
  13. VINCRISTINE [Concomitant]
     Active Substance: VINCRISTINE
     Dosage: 2 MG, UNK
     Route: 042
     Dates: start: 20150622, end: 20150622
  14. VINCRISTINE [Concomitant]
     Active Substance: VINCRISTINE
     Dosage: 2 MG, UNK
     Route: 042
     Dates: start: 20150714, end: 20150714
  15. RITUXIMAB [Concomitant]
     Active Substance: RITUXIMAB
     Dosage: 686.25 MG, UNK
     Route: 042
     Dates: start: 20150622, end: 20150622
  16. G-LASTA [Suspect]
     Active Substance: PEGFILGRASTIM
     Dosage: 6 MG, 1X/3WEEKS
     Route: 058
     Dates: start: 20150715, end: 20150715
  17. RITUXIMAB [Concomitant]
     Active Substance: RITUXIMAB
     Dosage: 690 MG, UNK
     Route: 042
     Dates: start: 20150714, end: 20150714
  18. CYCLOPHOSPHAMIDE. [Concomitant]
     Active Substance: CYCLOPHOSPHAMIDE
     Dosage: 1365 MG, UNK
     Route: 042
     Dates: start: 20150811, end: 20150811
  19. VINCRISTINE [Concomitant]
     Active Substance: VINCRISTINE
     Dosage: 2 MG, UNK
     Route: 042
     Dates: start: 20150529, end: 20150529
  20. G-LASTA [Suspect]
     Active Substance: PEGFILGRASTIM
     Indication: FEBRILE NEUTROPENIA
     Dosage: 6 MG, 1X/3WEEKS
     Route: 058
     Dates: start: 20150530, end: 20150530
  21. RITUXIMAB [Concomitant]
     Active Substance: RITUXIMAB
     Dosage: 682.5 MG, UNK
     Route: 042
     Dates: start: 20150529, end: 20150529
  22. RITUXIMAB [Concomitant]
     Active Substance: RITUXIMAB
     Dosage: 682.5 MG, UNK
     Route: 042
     Dates: start: 20150811, end: 20150811
  23. CYCLOPHOSPHAMIDE. [Concomitant]
     Active Substance: CYCLOPHOSPHAMIDE
     Dosage: 1372.5 MG, UNK
     Route: 042
     Dates: start: 20150622, end: 20150622
  24. VINCRISTINE [Concomitant]
     Active Substance: VINCRISTINE
     Dosage: 1.99 MG, UNK
     Route: 042
     Dates: start: 20150811, end: 20150811

REACTIONS (1)
  - Neutropenia [Recovered/Resolved]

NARRATIVE: CASE EVENT DATE: 20150820
